FAERS Safety Report 24955301 (Version 1)
Quarter: 2025Q1

REPORT INFORMATION
  Report Type: Spontaneous
  Country: US (occurrence: US)
  Receive Date: 20250211
  Receipt Date: 20250211
  Transmission Date: 20250408
  Serious: No
  Sender: VERICEL
  Company Number: US-VERICEL-US-VCEL-24-000431

PATIENT
  Age: 52 Year
  Sex: Female

DRUGS (1)
  1. MACI [Suspect]
     Active Substance: AUTOLOGOUS CULTURED CHONDROCYTES\SUS SCROFA COLLAGEN
     Indication: Joint injury
     Route: 050
     Dates: start: 20240923, end: 20240923

REACTIONS (4)
  - Arthritis [Not Recovered/Not Resolved]
  - Loose body in joint [Unknown]
  - Arthralgia [Not Recovered/Not Resolved]
  - Graft delamination [Unknown]

NARRATIVE: CASE EVENT DATE: 20241121
